FAERS Safety Report 7202265-X (Version None)
Quarter: 2010Q4

REPORT INFORMATION
  Report Type: 
  Country: None (occurrence: None)
  Receive Date: 20101229
  Receipt Date: 20101217
  Transmission Date: 20110411
  Serious: Yes (Hospitalization)
  Sender: FDA-Public Use
  Company Number: PHHY2010MX41896

PATIENT
  Age: 15 Year
  Sex: Male

DRUGS (3)
  1. ACLASTA [Suspect]
     Indication: OSTEOPOROSIS
     Dosage: 5 MG/100 ML PER YEAR
     Route: 042
     Dates: start: 20090601, end: 20100601
  2. ACLASTA [Suspect]
     Indication: OSTEOGENESIS IMPERFECTA
  3. FOSAMAX [Concomitant]
     Dosage: 1 TABLET PER WEEK
     Dates: start: 20040501

REACTIONS (4)
  - DEVICE FAILURE [None]
  - FALL [None]
  - LOWER LIMB FRACTURE [None]
  - PROSTHESIS IMPLANTATION [None]
